FAERS Safety Report 6585344-X (Version None)
Quarter: 2010Q1

REPORT INFORMATION
  Report Type: 
  Country: None (occurrence: None)
  Receive Date: 20100217
  Receipt Date: 20100209
  Transmission Date: 20100710
  Serious: Yes (Other)
  Sender: FDA-Public Use
  Company Number: AU-JNJFOC-20081205938

PATIENT
  Age: 50 Year
  Sex: Female
  Weight: 85 kg

DRUGS (4)
  1. DURAGESIC-100 [Suspect]
     Indication: MUSCULOSKELETAL PAIN
     Dosage: ONE 25UG/HR AND ONE 12UG/HR
     Route: 062
  2. DURAGESIC-100 [Suspect]
     Route: 062
  3. DURAGESIC-100 [Suspect]
     Indication: BACK PAIN
     Dosage: ONE 25UG/HR AND ONE 12UG/HR
     Route: 062
  4. DURAGESIC-100 [Suspect]
     Route: 062

REACTIONS (6)
  - BREAKTHROUGH PAIN [None]
  - EUPHORIC MOOD [None]
  - HYPERHIDROSIS [None]
  - OVARIAN CYST [None]
  - PRODUCT ADHESION ISSUE [None]
  - WRONG TECHNIQUE IN DRUG USAGE PROCESS [None]
